FAERS Safety Report 24849338 (Version 1)
Quarter: 2025Q1

REPORT INFORMATION
  Report Type: Spontaneous
  Country: DE (occurrence: DE)
  Receive Date: 20250116
  Receipt Date: 20250116
  Transmission Date: 20250409
  Serious: Yes (Life-Threatening, Hospitalization, Other)
  Sender: TEVA
  Company Number: DE-Laurus-001475

PATIENT
  Age: 66 Year
  Sex: Female

DRUGS (18)
  1. PREGABALIN [Suspect]
     Active Substance: PREGABALIN
     Indication: Neuralgia
     Route: 048
     Dates: start: 20231024, end: 20231207
  2. PREGABALIN [Suspect]
     Active Substance: PREGABALIN
     Indication: Neuralgia
     Route: 065
     Dates: start: 20240213, end: 20240311
  3. PREGABALIN [Suspect]
     Active Substance: PREGABALIN
     Indication: Neuralgia
     Route: 065
     Dates: start: 20231024, end: 20231207
  4. PREGABALIN [Suspect]
     Active Substance: PREGABALIN
     Indication: Neuralgia
     Route: 048
     Dates: start: 20231024, end: 20231207
  5. EUTHYROX [Concomitant]
     Active Substance: LEVOTHYROXINE SODIUM
     Indication: Product used for unknown indication
     Dosage: 50 MICROGRAM/DAY (1-0-0)/ONCE A DAY
     Route: 065
     Dates: start: 20240203
  6. PREGABALIN [Suspect]
     Active Substance: PREGABALIN
     Indication: Neuralgia
     Route: 048
     Dates: start: 20231207, end: 20240131
  7. PREGABALIN [Suspect]
     Active Substance: PREGABALIN
     Indication: Neuralgia
     Route: 065
     Dates: start: 20240131
  8. PREGABALIN [Suspect]
     Active Substance: PREGABALIN
     Indication: Neuralgia
     Route: 065
     Dates: start: 20231207, end: 20231216
  9. PREGABALIN [Suspect]
     Active Substance: PREGABALIN
     Indication: Neuralgia
     Route: 048
     Dates: start: 20231207, end: 20240131
  10. PREGABALIN [Suspect]
     Active Substance: PREGABALIN
     Indication: Neuralgia
     Route: 048
     Dates: start: 20231216
  11. RAMIPRIL [Concomitant]
     Active Substance: RAMIPRIL
     Indication: Hypertension
     Route: 065
  12. CANDESARTAN [Concomitant]
     Active Substance: CANDESARTAN
     Indication: Product used for unknown indication
     Dosage: 8 MG ONCE A DAY (1-0-0-0),
     Route: 065
     Dates: start: 20240207
  13. PREGABALIN [Suspect]
     Active Substance: PREGABALIN
     Indication: Neuralgia
     Route: 065
     Dates: start: 20240311, end: 20240506
  14. PREGABALIN [Suspect]
     Active Substance: PREGABALIN
     Indication: Neuralgia
     Dosage: 75 MG ONCE A DAY
     Route: 065
     Dates: start: 20231206, end: 20231226
  15. PREGABALIN [Suspect]
     Active Substance: PREGABALIN
     Indication: Neuralgia
     Dosage: 75 MG ONCE A DAY
     Route: 065
     Dates: start: 20231206, end: 20231226
  16. PREGABALIN [Suspect]
     Active Substance: PREGABALIN
     Indication: Neuralgia
     Dosage: 75 MG TWICE A DAY,
     Route: 065
     Dates: start: 20230930, end: 20231024
  17. LEVOTHYROXINE SODIUM\POTASSIUM IODIDE [Concomitant]
     Active Substance: LEVOTHYROXINE SODIUM\POTASSIUM IODIDE
     Indication: Hypothyroidism
     Route: 065
  18. VITAMIN B6 HEVERT [Concomitant]
     Indication: Vitamin B6 deficiency
     Dosage: ONCE A DAY (1-0-0-0)
     Route: 048

REACTIONS (38)
  - Altered state of consciousness [Recovered/Resolved with Sequelae]
  - Neck pain [Recovering/Resolving]
  - Limb injury [Recovering/Resolving]
  - Muscle spasms [Recovering/Resolving]
  - Urinary incontinence [Recovered/Resolved]
  - Restlessness [Recovering/Resolving]
  - Thinking abnormal [Unknown]
  - Myoclonus [Recovered/Resolved with Sequelae]
  - Muscle spasms [Recovering/Resolving]
  - Bone contusion [Not Recovered/Not Resolved]
  - Haematoma [Recovering/Resolving]
  - Fall [Recovering/Resolving]
  - Seizure [Recovered/Resolved with Sequelae]
  - Mobility decreased [Recovering/Resolving]
  - Panic attack [Recovered/Resolved with Sequelae]
  - Loss of consciousness [Recovering/Resolving]
  - Muscle spasms [Recovered/Resolved with Sequelae]
  - Feeling cold [Not Recovered/Not Resolved]
  - Depressed mood [Unknown]
  - Disturbance in attention [Unknown]
  - Tremor [Recovered/Resolved with Sequelae]
  - Hepatic enzyme increased [Unknown]
  - Dizziness [Recovered/Resolved with Sequelae]
  - Insomnia [Recovering/Resolving]
  - Withdrawal syndrome [Not Recovered/Not Resolved]
  - Stupor [Recovered/Resolved with Sequelae]
  - Tension [Recovering/Resolving]
  - Drug ineffective [Unknown]
  - Muscular weakness [Recovering/Resolving]
  - Fatigue [Recovering/Resolving]
  - Gait disturbance [Recovering/Resolving]
  - Syncope [Recovered/Resolved with Sequelae]
  - Musculoskeletal stiffness [Recovering/Resolving]
  - Somnolence [Unknown]
  - Asthenia [Recovering/Resolving]
  - Palpitations [Recovering/Resolving]
  - Respiratory rate increased [Recovering/Resolving]
  - Apathy [Recovering/Resolving]

NARRATIVE: CASE EVENT DATE: 20231225
